FAERS Safety Report 5718719-9 (Version None)
Quarter: 2008Q2

REPORT INFORMATION
  Report Type: 
  Country: None (occurrence: None)
  Receive Date: 20080425
  Receipt Date: 20080414
  Transmission Date: 20081010
  Serious: Yes (Other)
  Sender: FDA-Public Use
  Company Number: US-PFIZER INC-2008033765

PATIENT
  Sex: Female
  Weight: 63.5 kg

DRUGS (12)
  1. LYRICA [Suspect]
     Indication: FIBROMYALGIA
     Route: 048
  2. PERCOCET [Concomitant]
  3. OXYCODONE HCL [Concomitant]
  4. HYDROCODONE BITARTRATE [Concomitant]
  5. TRAMADOL HCL [Concomitant]
  6. GABAPENTIN [Concomitant]
  7. ANTIDEPRESSANTS [Concomitant]
  8. CYCLOBENZAPRINE HCL [Concomitant]
  9. CYMBALTA [Concomitant]
  10. AMITRIPTYLINE HCL [Concomitant]
  11. CLONAZEPAM [Concomitant]
  12. ALPRAZOLAM [Concomitant]

REACTIONS (2)
  - DISABILITY [None]
  - HYPERTENSION [None]
